FAERS Safety Report 7414880-9 (Version None)
Quarter: 2011Q2

REPORT INFORMATION
  Report Type: 
  Country: None (occurrence: None)
  Receive Date: 20110414
  Receipt Date: 20110408
  Transmission Date: 20111010
  Serious: Yes (Other)
  Sender: FDA-Public Use
  Company Number: US-TEVA-275553USA

PATIENT
  Age: 51 Year
  Sex: Female

DRUGS (3)
  1. COPAXONE [Suspect]
     Indication: MULTIPLE SCLEROSIS
     Route: 058
  2. INTERFERON BETA NOS [Suspect]
     Dosage: 4.2857 MICROGRAM;
     Route: 030
     Dates: start: 20030101, end: 20070315
  3. INTERFERON BETA NOS [Suspect]
     Indication: MULTIPLE SCLEROSIS
     Dosage: 4.2857 MICROGRAM;
     Route: 030
     Dates: start: 20030205, end: 20030101

REACTIONS (1)
  - BONE NEOPLASM MALIGNANT [None]
